FAERS Safety Report 25716743 (Version 1)
Quarter: 2025Q3

REPORT INFORMATION
  Report Type: Spontaneous
  Country: EU (occurrence: EU)
  Receive Date: 20250822
  Receipt Date: 20250822
  Transmission Date: 20251021
  Serious: Yes (Other)
  Sender: TEVA
  Company Number: None

PATIENT
  Age: 67 Year
  Sex: Female
  Weight: 95 kg

DRUGS (1)
  1. IMATINIB [Suspect]
     Active Substance: IMATINIB
     Indication: Chronic myeloid leukaemia
     Dosage: IMATINIB (MESILATE D^)
     Route: 048
     Dates: start: 2005, end: 201904

REACTIONS (1)
  - Chronic kidney disease [Recovered/Resolved with Sequelae]

NARRATIVE: CASE EVENT DATE: 20131101
